FAERS Safety Report 17391808 (Version 1)
Quarter: 2020Q1

REPORT INFORMATION
  Report Type: Spontaneous
  Country: CA (occurrence: CA)
  Receive Date: 20200207
  Receipt Date: 20200207
  Transmission Date: 20200409
  Serious: Yes (Other)
  Sender: FDA-Public Use
  Company Number: CA-TEVA-2020-CA-1180688

PATIENT
  Age: 46 Year
  Sex: Female

DRUGS (10)
  1. ZOLEDRONIC ACID INJECTION [Suspect]
     Active Substance: ZOLEDRONIC ACID
     Indication: OSTEOPOROSIS
     Dosage: .0137 MILLIGRAM DAILY;
     Route: 042
  2. ACYCLOVIR. [Concomitant]
     Active Substance: ACYCLOVIR
  3. PREDNISONE. [Concomitant]
     Active Substance: PREDNISONE
  4. ASA [Concomitant]
     Active Substance: ASPIRIN
  5. METHOTREXATE. [Concomitant]
     Active Substance: METHOTREXATE
  6. REVATIO [Concomitant]
     Active Substance: SILDENAFIL CITRATE
  7. FELODIPINE. [Concomitant]
     Active Substance: FELODIPINE
  8. HYDROXYCHLOROQUINE [Concomitant]
     Active Substance: HYDROXYCHLOROQUINE
  9. VITAMIN D [Concomitant]
     Active Substance: VITAMIN D NOS
  10. FOLIC ACID. [Concomitant]
     Active Substance: FOLIC ACID

REACTIONS (9)
  - Concomitant disease aggravated [Unknown]
  - Systemic lupus erythematosus [Unknown]
  - Fatigue [Unknown]
  - Pain [Unknown]
  - Arthralgia [Unknown]
  - Decreased appetite [Unknown]
  - Gait disturbance [Unknown]
  - Pyrexia [Unknown]
  - Chills [Unknown]
